FAERS Safety Report 5194441-5 (Version None)
Quarter: 2006Q4

REPORT INFORMATION
  Report Type: 
  Country: None (occurrence: None)
  Receive Date: 20061222
  Receipt Date: 20061206
  Transmission Date: 20070319
  Serious: Yes (Hospitalization)
  Sender: FDA-Public Use
  Company Number: 2006002301

PATIENT
  Age: 45 Year
  Sex: Male
  Weight: 79.6 kg

DRUGS (12)
  1. ERLOTINIB (TABLET) [Suspect]
     Indication: COLON CANCER
     Dosage: 100 MG (QD), ORAL
     Route: 048
     Dates: start: 20061109
  2. CPT-11(IRINOTECAN) (INJECTION FOR INFUSION) [Suspect]
     Dosage: 60 MG/MM, INTRAVENOUS
     Route: 042
     Dates: start: 20061109, end: 20061115
  3. ATENOLOL [Concomitant]
  4. ATIVAN [Concomitant]
  5. DECADRON [Concomitant]
  6. EMEND [Concomitant]
  7. INSULIN [Concomitant]
  8. LISINOPRIL [Concomitant]
  9. LOVENOX [Concomitant]
  10. OXYCODONE HCL [Concomitant]
  11. PREVACID [Concomitant]
  12. ZOLOFT [Concomitant]

REACTIONS (11)
  - ABDOMINAL PAIN [None]
  - ASTHENIA [None]
  - DIARRHOEA [None]
  - FATIGUE [None]
  - HAEMOGLOBIN DECREASED [None]
  - NAUSEA [None]
  - NEUTROPHIL COUNT DECREASED [None]
  - OEDEMA [None]
  - URETERIC OBSTRUCTION [None]
  - URINARY TRACT INFECTION [None]
  - WHITE BLOOD CELL COUNT DECREASED [None]
